FAERS Safety Report 5353899-9 (Version None)
Quarter: 2007Q2

REPORT INFORMATION
  Report Type: 
  Country: None (occurrence: None)
  Receive Date: 20070518
  Receipt Date: 20070208
  Transmission Date: 20071010
  Serious: No
  Sender: FDA-Public Use
  Company Number: TPA2006A01770

PATIENT
  Age: 66 Year
  Sex: Male
  Weight: 73.4827 kg

DRUGS (5)
  1. ROZEREM [Suspect]
     Indication: INSOMNIA
     Dosage: PER ORAL
     Route: 048
     Dates: start: 20060720, end: 20060727
  2. ACTONEL [Concomitant]
  3. XALATAN (LATANOPROST) (DROPS) [Concomitant]
  4. ADVICOR (NICOTINIC ACID, LOVASTATIN) [Concomitant]
  5. CIALIS [Concomitant]

REACTIONS (2)
  - ANXIETY [None]
  - INITIAL INSOMNIA [None]
